FAERS Safety Report 25239242 (Version 1)
Quarter: 2025Q2

REPORT INFORMATION
  Report Type: Spontaneous
  Country: US (occurrence: None)
  Receive Date: 20250424
  Receipt Date: 20250424
  Transmission Date: 20250717
  Serious: Yes (Life-Threatening, Hospitalization, Disabling)
  Sender: FDA-CTU
  Company Number: None

PATIENT
  Age: 76 Year
  Sex: Male
  Weight: 70 kg

DRUGS (1)
  1. WARFARIN SODIUM [Suspect]
     Active Substance: WARFARIN SODIUM
     Indication: Mitral valve replacement

REACTIONS (5)
  - Haemorrhage [None]
  - Cerebral haemorrhage [None]
  - Cerebrovascular accident [None]
  - Syncope [None]
  - Basal ganglia haemorrhage [None]

NARRATIVE: CASE EVENT DATE: 20240925
